FAERS Safety Report 20044929 (Version 1)
Quarter: 2021Q4

REPORT INFORMATION
  Report Type: Spontaneous
  Country: DE (occurrence: DE)
  Receive Date: 20211108
  Receipt Date: 20211108
  Transmission Date: 20220303
  Serious: Yes (Other)
  Sender: FDA-Public Use
  Company Number: DE-NOVARTISPH-NVSC2021DE247453

PATIENT
  Age: 38 Month
  Sex: Female

DRUGS (2)
  1. AZITHROMYCIN [Suspect]
     Active Substance: AZITHROMYCIN
     Indication: Pneumonia mycoplasmal
     Dosage: UNK
     Route: 065
  2. ERYTHROMYCIN [Suspect]
     Active Substance: ERYTHROMYCIN
     Indication: Pneumonia mycoplasmal
     Dosage: UNK
     Route: 065

REACTIONS (1)
  - Pathogen resistance [Unknown]
